FAERS Safety Report 6818990-6 (Version None)
Quarter: 2010Q3

REPORT INFORMATION
  Report Type: 
  Country: None (occurrence: None)
  Receive Date: 20100701
  Receipt Date: 20100618
  Transmission Date: 20110219
  Serious: Yes (Hospitalization)
  Sender: FDA-Public Use
  Company Number: B0662710A

PATIENT
  Age: 54 Year
  Sex: Male

DRUGS (13)
  1. CIPROFLOXACIN [Suspect]
     Indication: WOUND INFECTION
     Dates: start: 20080701
  2. CLINDAMYCIN [Suspect]
     Indication: WOUND INFECTION
  3. PIPERACILLINNA+TAZOBACTNA (FORMULATION UNKNOWN) (GENERIC) (PIPERACILLI [Suspect]
  4. MEROPENEM [Suspect]
  5. RIFAMPICIN [Suspect]
  6. METRONIDAZOLE [Suspect]
  7. KETOPROFEN [Suspect]
  8. AZTREONAM [Suspect]
  9. LINEZOLID [Suspect]
  10. TEICOPLANIN (FORMULATION UNKNOWN) (TEICOPLANIN) [Suspect]
  11. ACETAMINOPHEN [Concomitant]
  12. METHYLPREDNISOLONE [Concomitant]
  13. DEXCHLORPHENIRAMINE MALEATE [Concomitant]

REACTIONS (16)
  - ANGIOEDEMA [None]
  - APHONIA [None]
  - DERMATITIS ALLERGIC [None]
  - DERMATITIS EXFOLIATIVE [None]
  - DYSPHAGIA [None]
  - ERYTHEMA [None]
  - GASTROINTESTINAL HAEMORRHAGE [None]
  - HEPATIC FAILURE [None]
  - LEUKOPENIA [None]
  - MULTI-ORGAN FAILURE [None]
  - PARAESTHESIA [None]
  - PRURIGO [None]
  - PYREXIA [None]
  - RASH GENERALISED [None]
  - RENAL FAILURE [None]
  - SKIN TEST POSITIVE [None]
